FAERS Safety Report 22040458 (Version 1)
Quarter: 2023Q1

REPORT INFORMATION
  Report Type: Spontaneous
  Country: US (occurrence: None)
  Receive Date: 20230225
  Receipt Date: 20230225
  Transmission Date: 20230418
  Serious: No
  Sender: FDA-Public Use
  Company Number: None

PATIENT
  Sex: Female

DRUGS (3)
  1. TAXOL [Suspect]
     Active Substance: PACLITAXEL
     Route: 042
  2. CARBOPLATIN [Concomitant]
     Active Substance: CARBOPLATIN
  3. EMEND [Concomitant]
     Active Substance: APREPITANT

REACTIONS (4)
  - Dizziness [None]
  - Dyspnoea [None]
  - Flushing [None]
  - Product administration interrupted [None]
